FAERS Safety Report 15570055 (Version 5)
Quarter: 2019Q2

REPORT INFORMATION
  Report Type: Spontaneous
  Country: JP (occurrence: JP)
  Receive Date: 20181031
  Receipt Date: 20190531
  Transmission Date: 20190711
  Serious: Yes (Other)
  Sender: FDA-Public Use
  Company Number: JP-009507513-1810JPN013403

PATIENT
  Age: 74 Year
  Sex: Female

DRUGS (9)
  1. FLURBIPROFEN. [Concomitant]
     Active Substance: FLURBIPROFEN
  2. CANDESARTAN. [Concomitant]
     Active Substance: CANDESARTAN
     Dosage: UNK
  3. MIRABEGRON [Concomitant]
     Active Substance: MIRABEGRON
  4. LEVOCETIRIZINE DIHYDROCHLORIDE. [Concomitant]
     Active Substance: LEVOCETIRIZINE DIHYDROCHLORIDE
  5. JANUVIA [Suspect]
     Active Substance: SITAGLIPTIN PHOSPHATE
     Indication: TYPE 2 DIABETES MELLITUS
     Dosage: UNK
     Route: 048
  6. ESOMEPRAZOLE MAGNESIUM. [Concomitant]
     Active Substance: ESOMEPRAZOLE MAGNESIUM
     Dosage: UNK
  7. ZOLPIDEM TARTRATE. [Concomitant]
     Active Substance: ZOLPIDEM TARTRATE
  8. REBAMIPIDE [Concomitant]
     Active Substance: REBAMIPIDE
     Dosage: UNK
  9. EZETIMIBE. [Concomitant]
     Active Substance: EZETIMIBE

REACTIONS (5)
  - Chronic gastritis [Recovering/Resolving]
  - Hiatus hernia [Recovering/Resolving]
  - Immunoglobulins increased [Recovering/Resolving]
  - Helicobacter infection [Recovering/Resolving]
  - Gastric mucosal lesion [Recovering/Resolving]
